FAERS Safety Report 8538363-8 (Version None)
Quarter: 2012Q3

REPORT INFORMATION
  Report Type: 
  Country: None (occurrence: None)
  Receive Date: 20120726
  Receipt Date: 20120724
  Transmission Date: 20120928
  Serious: No
  Sender: FDA-Public Use
  Company Number: US-PFIZER INC-2012178308

PATIENT
  Sex: Female
  Weight: 136.96 kg

DRUGS (8)
  1. CALCIUM [Concomitant]
     Dosage: 600 MG, 3X/DAY
  2. ASPIRIN [Concomitant]
     Dosage: 81 MG, UNK
  3. CHANTIX [Suspect]
     Dosage: 1 MG, 2X/DAY
     Route: 048
  4. VITAMIN D [Concomitant]
     Dosage: ONCE A WEEK
  5. CHANTIX [Suspect]
     Indication: SMOKING CESSATION THERAPY
     Dosage: 0.5 MG, 1X/DAY
     Route: 048
     Dates: start: 20120601
  6. LISINOPRIL [Concomitant]
     Dosage: UNK
  7. TYLENOL [Concomitant]
     Indication: PAIN
     Dosage: 1000 MG (TWO 500 MG), 3X/DAY (EVERY 8 HOURS)
  8. SERTRALINE [Concomitant]
     Dosage: 50 MG, 1X/DAY

REACTIONS (1)
  - PALPITATIONS [None]
